FAERS Safety Report 8055688-3 (Version None)
Quarter: 2012Q1

REPORT INFORMATION
  Report Type: 
  Country: None (occurrence: None)
  Receive Date: 20120119
  Receipt Date: 20120109
  Transmission Date: 20120608
  Serious: Yes (Hospitalization, Other)
  Sender: FDA-Public Use
  Company Number: DE-ELI_LILLY_AND_COMPANY-DE201109004734

PATIENT
  Age: 70 Year
  Sex: Male

DRUGS (2)
  1. CALCIUM +VIT D [Concomitant]
  2. FORTEO [Suspect]
     Indication: OSTEOPOROSIS
     Dosage: UNK, QD
     Route: 058
     Dates: start: 20100831, end: 20110101

REACTIONS (7)
  - FEMORAL NECK FRACTURE [None]
  - DEVICE DISLOCATION [None]
  - HIP FRACTURE [None]
  - HOSPITALISATION [None]
  - FALL [None]
  - GAIT DISTURBANCE [None]
  - IMPAIRED HEALING [None]
